FAERS Safety Report 19325380 (Version 1)
Quarter: 2021Q2

REPORT INFORMATION
  Report Type: Spontaneous
  Country: US (occurrence: US)
  Receive Date: 20210528
  Receipt Date: 20210528
  Transmission Date: 20210717
  Serious: Yes (Other)
  Sender: FDA-Public Use
  Company Number: US-ASTRAZENECA-2021A468235

PATIENT
  Age: 30768 Day
  Sex: Male
  Weight: 83.9 kg

DRUGS (2)
  1. BYDUREON [Suspect]
     Active Substance: EXENATIDE
     Indication: DIABETES MELLITUS
     Route: 065
     Dates: end: 2021
  2. BYDUREON BCISE [Suspect]
     Active Substance: EXENATIDE
     Indication: DIABETES MELLITUS
     Route: 065
     Dates: start: 20210520

REACTIONS (6)
  - Dysphonia [Unknown]
  - Wrong technique in device usage process [Unknown]
  - Cerebrovascular accident [Unknown]
  - Drug dose omission by device [Unknown]
  - Device delivery system issue [Unknown]
  - Intentional device misuse [Unknown]

NARRATIVE: CASE EVENT DATE: 20210520
